FAERS Safety Report 5793541-6 (Version None)
Quarter: 2008Q2

REPORT INFORMATION
  Report Type: 
  Country: None (occurrence: None)
  Receive Date: 20080627
  Receipt Date: 20080615
  Transmission Date: 20081010
  Serious: Yes (Other)
  Sender: FDA-Public Use
  Company Number: PHHY2008BR11092

PATIENT
  Sex: Female
  Weight: 55 kg

DRUGS (2)
  1. TEGRETOL [Suspect]
     Route: 048
  2. ALCOHOL [Concomitant]

REACTIONS (2)
  - SOMNOLENCE [None]
  - SUICIDE ATTEMPT [None]
